FAERS Safety Report 4430988-4 (Version None)
Quarter: 2004Q3

REPORT INFORMATION
  Report Type: 
  Country: None (occurrence: None)
  Receive Date: 20040824
  Receipt Date: 20040818
  Transmission Date: 20050211
  Serious: Yes (Hospitalization)
  Sender: FDA-Public Use
  Company Number: GB-JNJFOC-20040803985

PATIENT
  Sex: Female

DRUGS (9)
  1. REMICADE [Suspect]
     Indication: RHEUMATOID ARTHRITIS
     Route: 042
  2. METHOTREXATE [Concomitant]
  3. FOLIC ACID [Concomitant]
  4. CO PROXAMOL [Concomitant]
  5. CO PROXAMOL [Concomitant]
  6. INSULATARD NPH HUMAN [Concomitant]
  7. TRITACE [Concomitant]
  8. PIRITON [Concomitant]
  9. ZOTON [Concomitant]

REACTIONS (4)
  - ATRIAL FIBRILLATION [None]
  - LOWER RESPIRATORY TRACT INFECTION [None]
  - PALPITATIONS [None]
  - PNEUMONIA [None]
